FAERS Safety Report 5910638-8 (Version None)
Quarter: 2008Q4

REPORT INFORMATION
  Report Type: 
  Country: None (occurrence: None)
  Receive Date: 20081007
  Receipt Date: 20080929
  Transmission Date: 20090506
  Serious: Yes (Death, Hospitalization)
  Sender: FDA-Public Use
  Company Number: AU-AVENTIS-200819285GDDC

PATIENT
  Age: 57 Year
  Sex: Male
  Weight: 57 kg

DRUGS (4)
  1. DOCETAXEL [Suspect]
     Route: 042
     Dates: start: 20080911, end: 20080911
  2. CARBOPLATIN [Suspect]
     Route: 042
     Dates: start: 20080911, end: 20080911
  3. TEGRETOL [Concomitant]
     Indication: EPILEPSY
  4. ONDASETRON                         /00955301/ [Concomitant]
     Dates: start: 20080918

REACTIONS (3)
  - ARRHYTHMIA [None]
  - HYPOTENSION [None]
  - SEPTIC SHOCK [None]
